FAERS Safety Report 6017197-2 (Version None)
Quarter: 2008Q4

REPORT INFORMATION
  Report Type: 
  Country: None (occurrence: None)
  Receive Date: 20081223
  Receipt Date: 20081216
  Transmission Date: 20090506
  Serious: Yes (Hospitalization)
  Sender: FDA-Public Use
  Company Number: JP-BRISTOL-MYERS SQUIBB COMPANY-14419923

PATIENT
  Age: 18 Year
  Sex: Male
  Weight: 76 kg

DRUGS (3)
  1. ABILIFY [Suspect]
     Indication: DEPRESSION
     Dosage: INITIATED AT 3MG/D ON 30-OCT-2008 INCREASED TO 3MG BID ON 11-NOV-2008 STOPPED ON 17-NOV-2008
     Route: 048
     Dates: start: 20081030, end: 20081117
  2. ZOLOFT [Concomitant]
     Dosage: FORMULATION: TABLETS STRENGTH: 25MG
     Route: 048
     Dates: start: 20070530, end: 20081117
  3. DEPAS [Concomitant]
     Dosage: FORMULATION: TAB
     Dates: start: 20070224, end: 20081117

REACTIONS (1)
  - EOSINOPHILIC PNEUMONIA [None]
